FAERS Safety Report 16788397 (Version 1)
Quarter: 2019Q3

REPORT INFORMATION
  Report Type: Spontaneous
  Country: US (occurrence: US)
  Receive Date: 20190910
  Receipt Date: 20190910
  Transmission Date: 20191005
  Serious: Yes (Hospitalization, Other)
  Sender: FDA-Public Use
  Company Number: US-ROCHE-2393928

PATIENT
  Sex: Female
  Weight: 47.67 kg

DRUGS (2)
  1. PULMOZYME [Suspect]
     Active Substance: DORNASE ALFA
     Indication: CYSTIC FIBROSIS
     Dosage: 1 AMPULE
     Route: 055
     Dates: start: 1995
  2. PREDNISONE. [Concomitant]
     Active Substance: PREDNISONE
     Dosage: UNKNOWN
     Route: 065

REACTIONS (10)
  - Polyp [Recovered/Resolved]
  - Von Willebrand^s disease [Not Recovered/Not Resolved]
  - Humerus fracture [Recovered/Resolved]
  - Fracture [Recovered/Resolved]
  - Cystic fibrosis [Recovered/Resolved]
  - Haemorrhage [Recovered/Resolved]
  - Ankle fracture [Unknown]
  - Fall [Unknown]
  - Ulna fracture [Recovered/Resolved]
  - Wrist fracture [Unknown]
